FAERS Safety Report 5342145-8 (Version None)
Quarter: 2007Q2

REPORT INFORMATION
  Report Type: 
  Country: None (occurrence: None)
  Receive Date: 20070601
  Receipt Date: 20070530
  Transmission Date: 20071010
  Serious: Yes (Other)
  Sender: FDA-Public Use
  Company Number: A0646867A

PATIENT
  Age: 49 Year
  Sex: Female

DRUGS (5)
  1. ADVAIR DISKUS 100/50 [Suspect]
     Indication: DRUG USE FOR UNKNOWN INDICATION
     Route: 055
     Dates: start: 20070402, end: 20070409
  2. SYNTHROID [Concomitant]
     Dosage: 88MCG PER DAY
     Dates: start: 20010701
  3. SALBUTAMOL [Concomitant]
     Dosage: 2PUFF AS REQUIRED
     Route: 055
     Dates: start: 20060901
  4. CYKLOKAPRON [Concomitant]
     Dosage: 500MG AS REQUIRED
     Dates: start: 20070209
  5. PROMETRIUM [Concomitant]
     Dates: start: 20070209

REACTIONS (3)
  - DEVICE INEFFECTIVE [None]
  - DRUG INEFFECTIVE [None]
  - DYSPNOEA [None]
